FAERS Safety Report 23603825 (Version 1)
Quarter: 2024Q1

REPORT INFORMATION
  Report Type: Spontaneous
  Country: RO (occurrence: RO)
  Receive Date: 20240307
  Receipt Date: 20240307
  Transmission Date: 20240410
  Serious: Yes (Hospitalization)
  Sender: FDA-Public Use
  Company Number: RO-AstraZeneca-2024-150902

PATIENT
  Sex: Female

DRUGS (1)
  1. SYNAGIS [Suspect]
     Active Substance: PALIVIZUMAB
     Indication: Antiviral prophylaxis
     Route: 030

REACTIONS (2)
  - Respiratory syncytial virus infection [Not Recovered/Not Resolved]
  - Respiratory disorder [Not Recovered/Not Resolved]
